FAERS Safety Report 9414295 (Version 2)
Quarter: 2013Q3

REPORT INFORMATION
  Report Type: Report from Study
  Country: JP (occurrence: JP)
  Receive Date: 20130723
  Receipt Date: 20130826
  Transmission Date: 20140515
  Serious: Yes (Other)
  Sender: FDA-Public Use
  Company Number: JP-ROCHE-1250809

PATIENT
  Age: 42 Year
  Sex: Male
  Weight: 63 kg

DRUGS (10)
  1. MIRCERA [Suspect]
     Indication: NEPHROGENIC ANAEMIA
     Route: 042
     Dates: start: 20120704
  2. BAYASPIRIN [Concomitant]
     Indication: GLOMERULONEPHRITIS CHRONIC
     Route: 048
  3. LIVALO [Concomitant]
     Indication: GLOMERULONEPHRITIS CHRONIC
     Route: 048
  4. ZYLORIC [Concomitant]
     Indication: GLOMERULONEPHRITIS CHRONIC
     Route: 048
  5. LASIX [Concomitant]
     Indication: GLOMERULONEPHRITIS CHRONIC
     Route: 048
  6. CINACALCET HYDROCHLORIDE [Concomitant]
     Indication: GLOMERULONEPHRITIS CHRONIC
     Route: 048
  7. FOSRENOL [Concomitant]
     Indication: GLOMERULONEPHRITIS CHRONIC
     Route: 048
  8. RASILEZ [Concomitant]
     Indication: GLOMERULONEPHRITIS CHRONIC
     Route: 048
  9. WARFARIN [Concomitant]
     Indication: GLOMERULONEPHRITIS CHRONIC
     Route: 048
  10. OXAROL [Concomitant]
     Indication: GLOMERULONEPHRITIS CHRONIC
     Route: 042
     Dates: start: 20120412

REACTIONS (1)
  - Arterial haemorrhage [Recovered/Resolved]
